FAERS Safety Report 6129171-6 (Version None)
Quarter: 2009Q1

REPORT INFORMATION
  Report Type: 
  Country: None (occurrence: None)
  Receive Date: 20090323
  Receipt Date: 20090323
  Transmission Date: 20090719
  Serious: Yes (Hospitalization)
  Sender: FDA-Public Use
  Company Number: None

PATIENT
  Age: 61 Year
  Sex: Male
  Weight: 71.6683 kg

DRUGS (9)
  1. GEMCITABINE HCL [Suspect]
     Indication: PANCREATIC CARCINOMA
     Dosage: AS ABOVE
     Dates: start: 20081215
  2. TARCEVA [Suspect]
     Indication: PANCREATIC CARCINOMA
     Dates: start: 20081215
  3. RADIATION [Suspect]
     Indication: PANCREATIC CARCINOMA
     Dosage: AS ABOVE
     Dates: start: 20081215
  4. SPIRONOLACTONE [Concomitant]
  5. REGLAN [Concomitant]
  6. COLACE [Concomitant]
  7. ZOFRAN [Concomitant]
  8. COMPAZINE [Concomitant]
  9. MEGACE [Concomitant]

REACTIONS (2)
  - DYSURIA [None]
  - PNEUMONIA [None]
